FAERS Safety Report 7824910-8 (Version None)
Quarter: 2011Q4

REPORT INFORMATION
  Report Type: 
  Country: None (occurrence: None)
  Receive Date: 20111019
  Receipt Date: 20110222
  Transmission Date: 20120403
  Serious: No
  Sender: FDA-Public Use
  Company Number: US-BRISTOL-MYERS SQUIBB COMPANY-15561665

PATIENT
  Age: 52 Year
  Sex: Male

DRUGS (2)
  1. AVALIDE [Suspect]
  2. ASPIRIN [Concomitant]
     Dosage: LOW DOSE ASPIRIN

REACTIONS (3)
  - MUSCULOSKELETAL PAIN [None]
  - BACK PAIN [None]
  - HYPERTENSION [None]
